FAERS Safety Report 7070144-7 (Version None)
Quarter: 2010Q4

REPORT INFORMATION
  Report Type: 
  Country: None (occurrence: None)
  Receive Date: 20101028
  Receipt Date: 20100907
  Transmission Date: 20110411
  Serious: No
  Sender: FDA-Public Use
  Company Number: US-WYE-H17416510

PATIENT
  Sex: Female
  Weight: 82.17 kg

DRUGS (5)
  1. PROTONIX [Suspect]
     Indication: ABDOMINAL PAIN UPPER
     Dates: start: 20100324, end: 20100401
  2. PROTONIX [Suspect]
     Indication: GASTROOESOPHAGEAL REFLUX DISEASE
  3. ESTRADIOL [Concomitant]
  4. SIMVASTATIN [Concomitant]
  5. METFORMIN [Concomitant]

REACTIONS (2)
  - DRUG INEFFECTIVE [None]
  - HEADACHE [None]
